FAERS Safety Report 6182200-6 (Version None)
Quarter: 2009Q2

REPORT INFORMATION
  Report Type: 
  Country: None (occurrence: None)
  Receive Date: 20090505
  Receipt Date: 20090505
  Transmission Date: 20091009
  Serious: Yes (Other)
  Sender: FDA-Public Use
  Company Number: None

PATIENT
  Sex: Female
  Weight: 64.8644 kg

DRUGS (1)
  1. PEGINTRON 96 MCG SCHERING [Suspect]
     Indication: HEPATITIS C
     Dosage: 96 MCG 1 SQ
     Route: 058
     Dates: start: 20090301, end: 20090301

REACTIONS (7)
  - ABDOMINAL DISTENSION [None]
  - CHILLS [None]
  - EPISTAXIS [None]
  - EXPIRED DRUG ADMINISTERED [None]
  - PAIN [None]
  - RASH [None]
  - TREMOR [None]
